FAERS Safety Report 18173255 (Version 1)
Quarter: 2020Q3

REPORT INFORMATION
  Report Type: Spontaneous
  Country: CA (occurrence: CA)
  Receive Date: 20200819
  Receipt Date: 20200819
  Transmission Date: 20201103
  Serious: Yes (Death)
  Sender: FDA-Public Use
  Company Number: CA-PURDUE-USA-2020-0162749

PATIENT
  Age: 25 Year
  Sex: Female

DRUGS (1)
  1. HYDROMORPHONE HCL (SIMILAR TO 19?892) [Suspect]
     Active Substance: HYDROMORPHONE HYDROCHLORIDE
     Indication: PRODUCT USED FOR UNKNOWN INDICATION
     Dosage: UNK
     Route: 042

REACTIONS (4)
  - Overdose [Fatal]
  - Substance dependence [Fatal]
  - Respiratory failure [Fatal]
  - Substance abuse [Fatal]
